FAERS Safety Report 24568685 (Version 2)
Quarter: 2024Q4

REPORT INFORMATION
  Report Type: Spontaneous
  Country: JP (occurrence: JP)
  Receive Date: 20241031
  Receipt Date: 20241211
  Transmission Date: 20250115
  Serious: Yes (Other)
  Sender: BAXTER
  Company Number: JP-shionogi-202400001668

PATIENT
  Age: 63 Year
  Sex: Female

DRUGS (22)
  1. CYCLOPHOSPHAMIDE [Suspect]
     Active Substance: CYCLOPHOSPHAMIDE
     Indication: Diffuse large B-cell lymphoma
     Dosage: 1 CYCLE OF R-CHOP
     Route: 065
  2. CYCLOPHOSPHAMIDE [Suspect]
     Active Substance: CYCLOPHOSPHAMIDE
     Dosage: 3 CYCLES OF DA-EPOCH-R
     Route: 065
  3. CYCLOPHOSPHAMIDE [Suspect]
     Active Substance: CYCLOPHOSPHAMIDE
     Dosage: 4 CYCLES OF DA-EPOCH-R COMBINED WITH INTRATHECAL INJECTION
     Route: 050
  4. CYCLOPHOSPHAMIDE [Suspect]
     Active Substance: CYCLOPHOSPHAMIDE
     Route: 065
  5. PREDONINE [Suspect]
     Active Substance: PREDNISOLONE
     Indication: Diffuse large B-cell lymphoma
     Dosage: 1 CYCLE OF R-CHOP
     Route: 065
  6. PREDONINE [Suspect]
     Active Substance: PREDNISOLONE
     Dosage: 4 CYCLES OF DA-EPOCH-R COMBINED WITH INTRATHECAL INJECTION
     Route: 050
  7. PREDONINE [Suspect]
     Active Substance: PREDNISOLONE
     Dosage: 3 CYCLES OF DA-EPOCH-R
     Route: 065
  8. RITUXIMAB [Concomitant]
     Active Substance: RITUXIMAB
     Indication: Diffuse large B-cell lymphoma
     Dosage: 3 CYCLES OF DA-EPOCH-R
     Route: 065
  9. RITUXIMAB [Concomitant]
     Active Substance: RITUXIMAB
     Dosage: 4 CYCLES OF DA-EPOCH-R COMBINED WITH INTRATHECAL INJECTION
     Route: 050
  10. RITUXIMAB [Concomitant]
     Active Substance: RITUXIMAB
     Dosage: 2 CYCLES OF POLA-BR
     Route: 065
  11. RITUXIMAB [Concomitant]
     Active Substance: RITUXIMAB
     Dosage: 1 CYCLE OF R-CHOP
     Route: 065
  12. DOXORUBICIN HYDROCHLORIDE [Concomitant]
     Active Substance: DOXORUBICIN HYDROCHLORIDE
     Indication: Diffuse large B-cell lymphoma
     Dosage: 3 CYCLES OF DA-EPOCH-R
     Route: 065
  13. DOXORUBICIN HYDROCHLORIDE [Concomitant]
     Active Substance: DOXORUBICIN HYDROCHLORIDE
     Dosage: 4 CYCLES OF DA-EPOCH-R COMBINED WITH INTRATHECAL INJECTION
     Route: 050
  14. DOXORUBICIN HYDROCHLORIDE [Concomitant]
     Active Substance: DOXORUBICIN HYDROCHLORIDE
     Dosage: 1 CYCLE OF R-CHOP
     Route: 065
  15. VINCRISTINE SULFATE [Concomitant]
     Active Substance: VINCRISTINE SULFATE
     Indication: Diffuse large B-cell lymphoma
     Dosage: 3 CYCLES OF DA-EPOCH-R
     Route: 065
  16. VINCRISTINE SULFATE [Concomitant]
     Active Substance: VINCRISTINE SULFATE
     Dosage: 4 CYCLES OF DA-EPOCH-R COMBINED WITH INTRATHECAL INJECTION
     Route: 050
  17. VINCRISTINE SULFATE [Concomitant]
     Active Substance: VINCRISTINE SULFATE
     Dosage: 1 CYCLE OF R-CHOP
     Route: 065
  18. ETOPOSIDE [Concomitant]
     Active Substance: ETOPOSIDE
     Indication: Diffuse large B-cell lymphoma
     Dosage: 3 CYCLES OF DA-EPOCH-R
     Route: 065
  19. ETOPOSIDE [Concomitant]
     Active Substance: ETOPOSIDE
     Dosage: 4 CYCLES OF DA-EPOCH-R COMBINED WITH INTRATHECAL INJECTION
     Route: 050
  20. METHOTREXATE [Concomitant]
     Active Substance: METHOTREXATE
     Indication: Diffuse large B-cell lymphoma
     Dosage: 2 CYCLES OF HD-MTX
     Route: 065
  21. POLATUZUMAB VEDOTIN [Concomitant]
     Active Substance: POLATUZUMAB VEDOTIN
     Indication: Diffuse large B-cell lymphoma
     Dosage: 2 CYCLES OF POLA-BR
     Route: 065
  22. BENDAMUSTINE HYDROCHLORIDE [Concomitant]
     Active Substance: BENDAMUSTINE HYDROCHLORIDE
     Indication: Diffuse large B-cell lymphoma
     Dosage: 2 CYCLES OF POLA-BR
     Route: 065

REACTIONS (1)
  - Angiocentric lymphoma [Unknown]
